FAERS Safety Report 9361527 (Version 2)
Quarter: 2013Q3

REPORT INFORMATION
  Report Type: Spontaneous
  Country: US (occurrence: US)
  Receive Date: 20130621
  Receipt Date: 20130717
  Transmission Date: 20140515
  Serious: No
  Sender: FDA-Public Use
  Company Number: US-009507513-1306USA008298

PATIENT
  Sex: Female
  Weight: 56.24 kg

DRUGS (4)
  1. CLARITIN [Suspect]
     Indication: SNEEZING
     Dosage: 10 MG, QD
     Route: 048
     Dates: start: 201305, end: 201306
  2. CLARITIN [Suspect]
     Indication: LACRIMATION INCREASED
  3. CLARITIN [Suspect]
     Indication: RHINORRHOEA
  4. CLARITIN [Suspect]
     Indication: MEDICAL OBSERVATION

REACTIONS (1)
  - Drug ineffective [Unknown]
